FAERS Safety Report 9596212 (Version 3)
Quarter: 2013Q4

REPORT INFORMATION
  Report Type: Report from Study
  Country: FR (occurrence: FR)
  Receive Date: 20131004
  Receipt Date: 20131016
  Transmission Date: 20140711
  Serious: Yes (Hospitalization)
  Sender: FDA-Public Use
  Company Number: FR-PFIZER INC-2013280810

PATIENT
  Age: 42 Year
  Sex: Male
  Weight: 47 kg

DRUGS (7)
  1. AZADOSE [Suspect]
     Indication: TOXOPLASMOSIS PROPHYLAXIS
     Dosage: 515 UNK, 1X/DAY
     Dates: start: 20130822, end: 20130927
  2. MARAVIROC [Suspect]
     Indication: HIV INFECTION
     Dosage: 150 UNK, 2X/DAY
     Dates: start: 20130822
  3. TRUVADA [Suspect]
     Indication: HIV INFECTION
     Dosage: 445 UNK, 1X/DAY
     Dates: start: 20130822
  4. PREZISTA [Suspect]
     Indication: HIV INFECTION
     Dosage: 800 UNK, 1X/DAY
     Dates: start: 20130822
  5. NORVIR [Suspect]
     Indication: HIV INFECTION
     Dosage: 100 UNK, 1X/DAY
     Dates: start: 20130822
  6. VALIUM [Suspect]
     Indication: ANXIETY
     Dosage: 5 UNK, 1X/DAY
     Dates: start: 20130810
  7. ATARAX [Suspect]
     Indication: INSOMNIA
     Dosage: 25 UNK, 1X/DAY
     Dates: start: 20130822

REACTIONS (1)
  - Progressive multifocal leukoencephalopathy [Unknown]
